FAERS Safety Report 9476770 (Version 1)
Quarter: 2013Q3

REPORT INFORMATION
  Report Type: Spontaneous
  Country: US (occurrence: US)
  Receive Date: 20130826
  Receipt Date: 20130826
  Transmission Date: 20140515
  Serious: No
  Sender: FDA-Public Use
  Company Number: US-BRISTOL-MYERS SQUIBB COMPANY-19040864

PATIENT
  Age: 52 Year
  Sex: Female
  Weight: 42.18 kg

DRUGS (1)
  1. KENALOG-40 INJ [Suspect]

REACTIONS (2)
  - Influenza [Unknown]
  - Injection site atrophy [Unknown]
